FAERS Safety Report 8052852 (Version 3)
Quarter: 2012Q4

REPORT INFORMATION
  Report Type: 
  Country: US (occurrence: US)
  Receive Date: 20110725
  Receipt Date: 20121204
  Transmission Date: 20130627
  Serious: Yes (Hospitalization)
  Sender: FDA-Public Use
  Company Number: US-GLAXOSMITHKLINE-A0937843A

PATIENT
  Age: 54 Year
  Sex: Male

DRUGS (2)
  1. AVANDAMET [Suspect]
     Indication: DIABETES MELLITUS
     Route: 048
     Dates: start: 200411, end: 200503
  2. AVANDIA [Suspect]
     Indication: DIABETES MELLITUS
     Dosage: 8MG Per day
     Route: 048
     Dates: start: 200504, end: 200807

REACTIONS (5)
  - Myocardial infarction [Not Recovered/Not Resolved]
  - Arteriosclerosis [Unknown]
  - Chest pain [Unknown]
  - Coronary artery disease [Unknown]
  - Coronary artery bypass [Unknown]
